FAERS Safety Report 4364770-3 (Version None)
Quarter: 2004Q2

REPORT INFORMATION
  Report Type: 
  Country: None (occurrence: None)
  Receive Date: 20040526
  Receipt Date: 20040518
  Transmission Date: 20050107
  Serious: Yes (Hospitalization)
  Sender: FDA-Public Use
  Company Number: PHBS2004JP06708

PATIENT
  Age: 2 Year
  Sex: Male

DRUGS (2)
  1. ZADITEN [Suspect]
     Indication: RHINITIS
     Dosage: 2.4 MG, ONCE/SINGLE
     Dates: start: 20040518
  2. DIPYRIDAMOLE [Suspect]
     Indication: RHINITIS
     Dates: start: 20040518

REACTIONS (1)
  - ACCIDENTAL OVERDOSE [None]
